FAERS Safety Report 8917150 (Version 1)
Quarter: 2012Q4

REPORT INFORMATION
  Report Type: 
  Country: US (occurrence: US)
  Receive Date: 20121120
  Receipt Date: 20121120
  Transmission Date: 20130627
  Serious: Yes (Other)
  Sender: FDA-Public Use
  Company Number: US-009507513-1211USA007769

PATIENT
  Age: 56 Year
  Sex: Female

DRUGS (1)
  1. FELBATOL [Suspect]
     Indication: EPILEPSY
     Dosage: 1800 mg, bid; 1200 mg, qd
     Route: 048
     Dates: start: 2010, end: 20121028

REACTIONS (2)
  - Grand mal convulsion [Recovered/Resolved]
  - Drug dose omission [Unknown]
